FAERS Safety Report 9631031 (Version 1)
Quarter: 2013Q4

REPORT INFORMATION
  Report Type: Spontaneous
  Country: US (occurrence: None)
  Receive Date: 20131015
  Receipt Date: 20131015
  Transmission Date: 20140711
  Serious: Yes (Hospitalization)
  Sender: FDA-Public Use
  Company Number: 002152043A

PATIENT
  Age: 43 Year
  Sex: Female

DRUGS (2)
  1. JERGENS NATURAL GLOW + PROTECT DAILY MOISTURIZER M/T [Suspect]
     Indication: HYPERSENSITIVITY
     Dosage: QUARTER SIZE/3 TIMES
  2. SPF 20 CLASSIC BEIGE [Suspect]
     Dosage: TOPICAL APPLICATION, QUARTER SIZE, TID.

REACTIONS (1)
  - Urticaria [None]
